FAERS Safety Report 9485685 (Version 1)
Quarter: 2013Q3

REPORT INFORMATION
  Report Type: Spontaneous
  Country: US (occurrence: None)
  Receive Date: 20130827
  Receipt Date: 20130827
  Transmission Date: 20140515
  Serious: Yes (Hospitalization)
  Sender: FDA-Public Use
  Company Number: None

PATIENT
  Age: 31 Year
  Sex: Male

DRUGS (1)
  1. CANDIN [Suspect]
     Indication: SKIN PAPILLOMA
     Route: 023
     Dates: start: 20130703, end: 20130730

REACTIONS (2)
  - Cholecystectomy [None]
  - Hospitalisation [None]
